FAERS Safety Report 19996177 (Version 2)
Quarter: 2022Q1

REPORT INFORMATION
  Report Type: Spontaneous
  Country: US (occurrence: US)
  Receive Date: 20211026
  Receipt Date: 20220309
  Transmission Date: 20220423
  Serious: Yes (Hospitalization, Other)
  Sender: FDA-Public Use
  Company Number: US-ORPHANEU-2020000892

PATIENT

DRUGS (2)
  1. CARBAGLU [Suspect]
     Active Substance: CARGLUMIC ACID
     Indication: Hyperammonaemia
     Dosage: 1200 MILLIGRAM, THREE TIMES DAILY
     Dates: start: 20181031
  2. CARBAGLU [Suspect]
     Active Substance: CARGLUMIC ACID
     Indication: Urea cycle disorder
     Dosage: 1200 MILLIGRAM, THREE TIMES DAILY

REACTIONS (10)
  - Sepsis [Unknown]
  - Coma [Recovered/Resolved]
  - Seizure [Unknown]
  - Ammonia increased [Unknown]
  - Hypertension [Unknown]
  - Laboratory test abnormal [Unknown]
  - Blood triglycerides increased [Unknown]
  - Insulin resistance [Unknown]
  - Weight decreased [Unknown]
  - Product administration error [Recovered/Resolved]

NARRATIVE: CASE EVENT DATE: 20180101
